FAERS Safety Report 23099276 (Version 2)
Quarter: 2023Q4

REPORT INFORMATION
  Report Type: Report from Study
  Country: JP (occurrence: JP)
  Receive Date: 20231024
  Receipt Date: 20231110
  Transmission Date: 20240109
  Serious: Yes (Death, Other)
  Sender: FDA-Public Use
  Company Number: JP-SERVIER-S23001621

PATIENT
  Age: 62 Year
  Sex: Female
  Weight: 36.2 kg

DRUGS (29)
  1. ONIVYDE [Suspect]
     Active Substance: IRINOTECAN HYDROCHLORIDE
     Indication: Pancreatic carcinoma
     Dosage: 50 MG/M2
     Route: 065
     Dates: start: 20220510, end: 20220510
  2. ONIVYDE [Suspect]
     Active Substance: IRINOTECAN HYDROCHLORIDE
     Dosage: 43 MG/M2
     Route: 065
     Dates: start: 20220610, end: 20220610
  3. ONIVYDE [Suspect]
     Active Substance: IRINOTECAN HYDROCHLORIDE
     Dosage: 43 MG/M2
     Route: 065
     Dates: start: 20220701, end: 20220701
  4. ONIVYDE [Suspect]
     Active Substance: IRINOTECAN HYDROCHLORIDE
     Dosage: 43 MG/M2
     Route: 065
     Dates: start: 20220715, end: 20220715
  5. ONIVYDE [Suspect]
     Active Substance: IRINOTECAN HYDROCHLORIDE
     Dosage: 43 MG/M2
     Route: 065
     Dates: start: 20220729, end: 20220729
  6. ONIVYDE [Suspect]
     Active Substance: IRINOTECAN HYDROCHLORIDE
     Dosage: 43 MG/M2
     Route: 065
     Dates: start: 20220812, end: 20220812
  7. ONIVYDE [Suspect]
     Active Substance: IRINOTECAN HYDROCHLORIDE
     Dosage: 35 MG/M2
     Route: 065
     Dates: start: 20220909, end: 20220909
  8. ONIVYDE [Suspect]
     Active Substance: IRINOTECAN HYDROCHLORIDE
     Dosage: 35 MG/M2
     Route: 065
     Dates: start: 20220930, end: 20220930
  9. FLUOROURACIL [Suspect]
     Active Substance: FLUOROURACIL
     Indication: Pancreatic carcinoma
     Dosage: 1800 MG/M2
     Route: 065
     Dates: start: 20220510, end: 20220512
  10. FLUOROURACIL [Suspect]
     Active Substance: FLUOROURACIL
     Dosage: 1350 MG/M2
     Route: 065
     Dates: start: 20220610, end: 20220612
  11. FLUOROURACIL [Suspect]
     Active Substance: FLUOROURACIL
     Dosage: 1350 MG/M2
     Route: 065
     Dates: start: 20220701, end: 20220703
  12. FLUOROURACIL [Suspect]
     Active Substance: FLUOROURACIL
     Dosage: 1350 MG/M2
     Route: 065
     Dates: start: 20220715, end: 20220717
  13. FLUOROURACIL [Suspect]
     Active Substance: FLUOROURACIL
     Dosage: 1350 MG/M2
     Route: 065
     Dates: start: 20220729, end: 20220731
  14. FLUOROURACIL [Suspect]
     Active Substance: FLUOROURACIL
     Dosage: 1350 MG/M2
     Route: 065
     Dates: start: 20220812, end: 20220814
  15. FLUOROURACIL [Suspect]
     Active Substance: FLUOROURACIL
     Dosage: 1200 MG/M2
     Route: 065
     Dates: start: 20220909, end: 20220911
  16. FLUOROURACIL [Suspect]
     Active Substance: FLUOROURACIL
     Dosage: 1200 MG/M2
     Route: 065
     Dates: start: 20220930, end: 20221002
  17. LEVOLEUCOVORIN CALCIUM [Concomitant]
     Active Substance: LEVOLEUCOVORIN CALCIUM
     Indication: Pancreatic carcinoma
     Dosage: 200 MG/M2
     Route: 065
     Dates: start: 20220510, end: 20220510
  18. LEVOLEUCOVORIN CALCIUM [Concomitant]
     Active Substance: LEVOLEUCOVORIN CALCIUM
     Dosage: 200 MG/M2
     Route: 065
     Dates: start: 20220610, end: 20220610
  19. LEVOLEUCOVORIN CALCIUM [Concomitant]
     Active Substance: LEVOLEUCOVORIN CALCIUM
     Dosage: 200 MG/M2
     Route: 065
     Dates: start: 20220701, end: 20220701
  20. LEVOLEUCOVORIN CALCIUM [Concomitant]
     Active Substance: LEVOLEUCOVORIN CALCIUM
     Dosage: 200 MG/M2
     Route: 065
     Dates: start: 20220715, end: 20220715
  21. LEVOLEUCOVORIN CALCIUM [Concomitant]
     Active Substance: LEVOLEUCOVORIN CALCIUM
     Dosage: 200 MG/M2
     Route: 065
     Dates: start: 20220729, end: 20220729
  22. LEVOLEUCOVORIN CALCIUM [Concomitant]
     Active Substance: LEVOLEUCOVORIN CALCIUM
     Dosage: 200 MG/M2
     Route: 065
     Dates: start: 20220812, end: 20220812
  23. LEVOLEUCOVORIN CALCIUM [Concomitant]
     Active Substance: LEVOLEUCOVORIN CALCIUM
     Dosage: 200 MG/M2
     Route: 065
     Dates: start: 20220909, end: 20220909
  24. LEVOLEUCOVORIN CALCIUM [Concomitant]
     Active Substance: LEVOLEUCOVORIN CALCIUM
     Dosage: 200 MG/M2
     Route: 065
     Dates: start: 20220930, end: 20220930
  25. PALONOSETRON HYDROCHLORIDE [Concomitant]
     Active Substance: PALONOSETRON HYDROCHLORIDE
     Indication: Chemotherapy side effect prophylaxis
     Dosage: UNK
  26. GRANISETRON [Concomitant]
     Active Substance: GRANISETRON
     Indication: Chemotherapy side effect prophylaxis
     Dosage: UNK
  27. APREPITANT [Concomitant]
     Active Substance: APREPITANT
     Indication: Chemotherapy side effect prophylaxis
     Dosage: UNK
     Route: 048
     Dates: start: 20220524, end: 20220526
  28. APREPITANT [Concomitant]
     Active Substance: APREPITANT
     Dosage: UNK
     Route: 048
  29. DEXAMETHASONE [Concomitant]
     Active Substance: DEXAMETHASONE
     Indication: Chemotherapy side effect prophylaxis
     Dosage: UNK

REACTIONS (4)
  - Malignant neoplasm progression [Fatal]
  - Neutrophil count decreased [Recovering/Resolving]
  - Malaise [Recovering/Resolving]
  - Off label use [Recovered/Resolved]

NARRATIVE: CASE EVENT DATE: 20220510
